FAERS Safety Report 8384515-X (Version None)
Quarter: 2012Q2

REPORT INFORMATION
  Report Type: 
  Country: None (occurrence: None)
  Receive Date: 20120524
  Receipt Date: 20120522
  Transmission Date: 20120825
  Serious: Yes (Other)
  Sender: FDA-Public Use
  Company Number: PHHY2012AR044333

PATIENT
  Sex: Female

DRUGS (1)
  1. EXELON [Suspect]
     Indication: DEMENTIA
     Dosage: 1 DF, DAILY
     Route: 062
     Dates: start: 20120201

REACTIONS (5)
  - APHASIA [None]
  - FEELING ABNORMAL [None]
  - MALAISE [None]
  - BLOOD CALCIUM INCREASED [None]
  - MOVEMENT DISORDER [None]
